FAERS Safety Report 15021905 (Version 1)
Quarter: 2018Q2

REPORT INFORMATION
  Report Type: Spontaneous
  Country: US (occurrence: US)
  Receive Date: 20180601
  Receipt Date: 20180601
  Transmission Date: 20180711
  Serious: Yes (Hospitalization, Disabling, Other)
  Sender: FDA-Public Use
  Company Number: None

PATIENT
  Age: 21 Year
  Sex: Female

DRUGS (1)
  1. TAYTULLA [Suspect]
     Active Substance: ETHINYL ESTRADIOL\NORETHINDRONE ACETATE
     Indication: POLYCYSTIC OVARIES
     Route: 048

REACTIONS (9)
  - Gastrointestinal bacterial overgrowth [None]
  - Rash generalised [None]
  - Muscle spasms [None]
  - Idiopathic intracranial hypertension [None]
  - Nausea [None]
  - Pain in extremity [None]
  - Thyroid disorder [None]
  - Brain oedema [None]
  - Vomiting [None]

NARRATIVE: CASE EVENT DATE: 20171116
